FAERS Safety Report 4699370-9 (Version None)
Quarter: 2005Q2

REPORT INFORMATION
  Report Type: 
  Country: None (occurrence: None)
  Receive Date: 20050622
  Receipt Date: 20050606
  Transmission Date: 20051028
  Serious: Yes (Congenital Anomaly)
  Sender: FDA-Public Use
  Company Number: 2005-DE-02118GD

PATIENT

DRUGS (3)
  1. DICLOFENAC               (DICLOFENAC) [Suspect]
     Dosage: IU
     Route: 064
  2. RANITIDINE [Suspect]
     Dosage: IU
     Route: 064
  3. PARAMETHASONE (PARAMETHASONE) [Suspect]
     Dosage: IU
     Route: 064

REACTIONS (2)
  - DRUG EXPOSURE DURING PREGNANCY [None]
  - VENTRICULAR SEPTAL DEFECT [None]
